FAERS Safety Report 9737013 (Version 1)
Quarter: 2013Q4

REPORT INFORMATION
  Report Type: Spontaneous
  Country: US (occurrence: US)
  Receive Date: 20131206
  Receipt Date: 20131206
  Transmission Date: 20140711
  Serious: No
  Sender: FDA-Public Use
  Company Number: US-GILEAD-2009-0024049

PATIENT
  Sex: Female
  Weight: 45.81 kg

DRUGS (7)
  1. LETAIRIS [Suspect]
     Indication: PULMONARY ARTERIAL HYPERTENSION
     Route: 048
     Dates: start: 20080923
  2. NEXIUM [Concomitant]
  3. SPIRIVA [Concomitant]
  4. KLONOPIN [Concomitant]
  5. XANAX [Concomitant]
  6. LEXAPRO [Concomitant]
  7. ZOMETA [Concomitant]

REACTIONS (2)
  - Hot flush [Unknown]
  - Anaemia [Unknown]
